FAERS Safety Report 5150872-0 (Version None)
Quarter: 2006Q4

REPORT INFORMATION
  Report Type: 
  Country: None (occurrence: None)
  Receive Date: 20061108
  Receipt Date: 20061024
  Transmission Date: 20070319
  Serious: Yes (Hospitalization)
  Sender: FDA-Public Use
  Company Number: PAR_0879_2006

PATIENT
  Age: 72 Year
  Sex: Female

DRUGS (3)
  1. RANITIDINE HYDROCHLORIDE [Suspect]
     Indication: DRUG USE FOR UNKNOWN INDICATION
     Dosage: 300 MG QDAY
  2. RANITIDINE HYDROCHLORIDE [Suspect]
     Indication: DRUG USE FOR UNKNOWN INDICATION
     Dosage: 150 MG QDAY
  3. AMITRIPTYLINE HCL [Concomitant]

REACTIONS (5)
  - ABNORMAL BEHAVIOUR [None]
  - HYPOAESTHESIA [None]
  - HYPOREFLEXIA [None]
  - MEIGE'S SYNDROME [None]
  - PARAESTHESIA [None]
